FAERS Safety Report 5733932-2 (Version None)
Quarter: 2008Q2

REPORT INFORMATION
  Report Type: 
  Country: None (occurrence: None)
  Receive Date: 20080509
  Receipt Date: 20080415
  Transmission Date: 20081010
  Serious: No
  Sender: FDA-Public Use
  Company Number: US-BOEHRINGER INGELHEIM GMBH, GERMANY-2008-BP-05963BP

PATIENT
  Age: 53 Year
  Sex: Female

DRUGS (2)
  1. AGGRENOX [Suspect]
     Indication: TRANSIENT ISCHAEMIC ATTACK
     Route: 048
     Dates: start: 20060101
  2. LOXAPINE [Suspect]
     Indication: NIGHTMARE
     Route: 048
     Dates: start: 20080310

REACTIONS (1)
  - CONTUSION [None]
